FAERS Safety Report 22088234 (Version 1)
Quarter: 2023Q1

REPORT INFORMATION
  Report Type: Spontaneous
  Country: US (occurrence: US)
  Receive Date: 20230313
  Receipt Date: 20230313
  Transmission Date: 20230418
  Serious: No
  Sender: FDA-Public Use
  Company Number: US-AUROBINDO-AUR-APL-2022-022835

PATIENT
  Sex: Female

DRUGS (1)
  1. AMOXICILLIN\CLAVULANATE POTASSIUM [Suspect]
     Active Substance: AMOXICILLIN\CLAVULANATE POTASSIUM
     Indication: Animal bite
     Dosage: 1 DOSAGE FORM, TWO TIMES A DAY
     Route: 048

REACTIONS (9)
  - Dysphagia [Recovering/Resolving]
  - Salivary hypersecretion [Recovering/Resolving]
  - Headache [Recovering/Resolving]
  - Throat tightness [Recovering/Resolving]
  - Feeling abnormal [Not Recovered/Not Resolved]
  - Paraesthesia [Recovering/Resolving]
  - Cold sweat [Recovering/Resolving]
  - Feeling hot [Recovering/Resolving]
  - Malaise [Recovering/Resolving]
